FAERS Safety Report 6097355-1 (Version None)
Quarter: 2009Q1

REPORT INFORMATION
  Report Type: 
  Country: None (occurrence: None)
  Receive Date: 20090226
  Receipt Date: 20090226
  Transmission Date: 20090719
  Serious: No
  Sender: FDA-Public Use
  Company Number: None

PATIENT
  Age: 60 Year
  Sex: Female
  Weight: 113.3993 kg

DRUGS (2)
  1. LEVAQUIN [Suspect]
     Indication: SINUSITIS
     Dosage: 500 MG  DAILY PO
     Route: 048
     Dates: start: 20090213, end: 20090222
  2. AVELOX [Suspect]
     Indication: SINUSITIS
     Dosage: 400 MG DAILY PO
     Route: 048
     Dates: start: 20081202, end: 20081208

REACTIONS (13)
  - ABDOMINAL DISTENSION [None]
  - ABNORMAL DREAMS [None]
  - ANXIETY [None]
  - ARTHRALGIA [None]
  - CONDITION AGGRAVATED [None]
  - FIBROMYALGIA [None]
  - GAIT DISTURBANCE [None]
  - MOVEMENT DISORDER [None]
  - NIGHTMARE [None]
  - PAIN [None]
  - RENAL PAIN [None]
  - SWELLING [None]
  - TENDON PAIN [None]
